FAERS Safety Report 19173939 (Version 1)
Quarter: 2021Q2

REPORT INFORMATION
  Report Type: Spontaneous
  Country: US (occurrence: US)
  Receive Date: 20210423
  Receipt Date: 20210423
  Transmission Date: 20210717
  Serious: Yes (Hospitalization, Other)
  Sender: FDA-Public Use
  Company Number: US-AMGEN-USASP2021057568

PATIENT
  Age: 56 Year
  Sex: Female

DRUGS (10)
  1. ZANAFLEX [Suspect]
     Active Substance: TIZANIDINE HYDROCHLORIDE
     Indication: PRODUCT USED FOR UNKNOWN INDICATION
     Dosage: 0.75 DOSAGE
     Route: 065
     Dates: start: 20201211
  2. PROLIA [Suspect]
     Active Substance: DENOSUMAB
     Indication: PRODUCT USED FOR UNKNOWN INDICATION
     Dosage: UNK
     Route: 065
     Dates: start: 20201211
  3. HUMIRA [Suspect]
     Active Substance: ADALIMUMAB
     Indication: PSORIASIS
     Dosage: 40 MILLIGRAM, (40MG/0.8ML SOLUTION FOR INJECTION IN PRE?FILLED PEN)
     Route: 058
     Dates: end: 20160101
  4. COVID?19 VACCINE NOS. [Concomitant]
     Active Substance: COVID-19 VACCINE NOS
     Indication: COVID-19 IMMUNISATION
     Route: 030
  5. METHOTREXATE. [Concomitant]
     Active Substance: METHOTREXATE
  6. IMODIUM [Concomitant]
     Active Substance: LOPERAMIDE HYDROCHLORIDE
  7. EPIPEN [Concomitant]
     Active Substance: EPINEPHRINE
     Route: 030
  8. HUMIRA [Suspect]
     Active Substance: ADALIMUMAB
     Dosage: 40 MILLIGRAM, (40MG/0.4 ML SOLUTION FOR INJECTION IN PRE?FILLED PEN)
     Route: 058
     Dates: start: 20210223
  9. HUMIRA [Suspect]
     Active Substance: ADALIMUMAB
     Indication: PSORIATIC ARTHROPATHY
     Dosage: 40 MILLIGRAM, (40MG/0.8ML SOLUTION FOR INJECTION IN PRE?FILLED PEN)
     Route: 058
     Dates: start: 20060101
  10. TRULICITY [Suspect]
     Active Substance: DULAGLUTIDE
     Indication: PRODUCT USED FOR UNKNOWN INDICATION
     Dosage: 0.75 DOSAGE
     Route: 065
     Dates: start: 20201211

REACTIONS (22)
  - Nephropathy [Recovering/Resolving]
  - Psoriasis [Unknown]
  - Drug hypersensitivity [Not Recovered/Not Resolved]
  - Coronary artery occlusion [Not Recovered/Not Resolved]
  - Abdominal pain [Unknown]
  - In vitro fertilisation [Unknown]
  - Transfusion [Unknown]
  - Fall [Recovered/Resolved]
  - Cardiac operation [Recovered/Resolved]
  - Lymphoedema [Recovering/Resolving]
  - Rotator cuff syndrome [Not Recovered/Not Resolved]
  - Blood creatinine increased [Not Recovered/Not Resolved]
  - Haemoglobin decreased [Not Recovered/Not Resolved]
  - Pain [Unknown]
  - Dry mouth [Unknown]
  - Clavicle fracture [Recovered/Resolved]
  - Bone loss [Unknown]
  - Spinal disorder [Recovered/Resolved]
  - Osteoarthritis [Not Recovered/Not Resolved]
  - Sleep apnoea syndrome [Unknown]
  - Coronary artery disease [Unknown]
  - Sluggishness [Unknown]

NARRATIVE: CASE EVENT DATE: 20201218
